FAERS Safety Report 7095715-3 (Version None)
Quarter: 2010Q4

REPORT INFORMATION
  Report Type: 
  Country: None (occurrence: None)
  Receive Date: 20101111
  Receipt Date: 20101104
  Transmission Date: 20110411
  Serious: Yes (Hospitalization)
  Sender: FDA-Public Use
  Company Number: US-B.I. PHARMACEUTICALS,INC./RIDGEFIELD-2010-BP-12405BP

PATIENT
  Age: 65 Year
  Sex: Female

DRUGS (1)
  1. DULCOLAX [Suspect]
     Indication: CONSTIPATION
     Route: 048
     Dates: start: 20040101

REACTIONS (3)
  - FEMUR FRACTURE [None]
  - GASTROINTESTINAL MOTILITY DISORDER [None]
  - PAIN [None]
